FAERS Safety Report 7233409-1 (Version None)
Quarter: 2011Q1

REPORT INFORMATION
  Report Type: 
  Country: None (occurrence: None)
  Receive Date: 20110119
  Receipt Date: 20110118
  Transmission Date: 20110831
  Serious: Yes (Death, Hospitalization)
  Sender: FDA-Public Use
  Company Number: US-B.I. PHARMACEUTICALS,INC./RIDGEFIELD-2011-BP-00261BP

PATIENT
  Sex: Female

DRUGS (2)
  1. DARVOCET [Concomitant]
  2. COMBIVENT [Suspect]

REACTIONS (2)
  - STAPHYLOCOCCAL INFECTION [None]
  - CARDIAC FAILURE [None]
